FAERS Safety Report 13247843 (Version 1)
Quarter: 2017Q1

REPORT INFORMATION
  Report Type: Spontaneous
  Country: DE (occurrence: DE)
  Receive Date: 20170217
  Receipt Date: 20170217
  Transmission Date: 20170428
  Serious: Yes (Other)
  Sender: FDA-Public Use
  Company Number: DE-SA-2017SA025215

PATIENT
  Age: 43 Year
  Sex: Male

DRUGS (6)
  1. G-CSF [Concomitant]
     Active Substance: GRANULOCYTE COLONY-STIMULATING FACTOR NOS
  2. IMATINIB [Concomitant]
     Active Substance: IMATINIB
  3. CYCLOPHOSPHAMIDE. [Concomitant]
     Active Substance: CYCLOPHOSPHAMIDE
     Dosage: 2X2 G/M2
  4. CYCLOPHOSPHAMIDE. [Suspect]
     Active Substance: CYCLOPHOSPHAMIDE
     Indication: BONE MARROW CONDITIONING REGIMEN
     Route: 065
     Dates: start: 200909, end: 200909
  5. METHOTREXATE. [Concomitant]
     Active Substance: METHOTREXATE
  6. ANTI-THYMOCYTE GLOBULIN (RABBIT) [Suspect]
     Active Substance: LAPINE T-LYMPHOCYTE IMMUNE GLOBULIN
     Indication: BONE MARROW CONDITIONING REGIMEN
     Route: 065
     Dates: start: 200909, end: 200909

REACTIONS (6)
  - Red blood cell acanthocytes present [Recovering/Resolving]
  - Haematuria [Recovering/Resolving]
  - Glomerulonephritis [Recovering/Resolving]
  - Proteinuria [Recovering/Resolving]
  - Anti-neutrophil cytoplasmic antibody positive vasculitis [Recovering/Resolving]
  - Bronchopulmonary aspergillosis [Recovered/Resolved]
